FAERS Safety Report 19126160 (Version 1)
Quarter: 2021Q2

REPORT INFORMATION
  Report Type: Spontaneous
  Country: US (occurrence: US)
  Receive Date: 20210412
  Receipt Date: 20210412
  Transmission Date: 20210717
  Serious: No
  Sender: FDA-Public Use
  Company Number: None

PATIENT
  Age: 51 Year
  Sex: Female

DRUGS (1)
  1. XELJANZ [Suspect]
     Active Substance: TOFACITINIB CITRATE
     Indication: CROHN^S DISEASE
     Route: 048
     Dates: start: 20191018, end: 20210405

REACTIONS (4)
  - Therapy change [None]
  - Condition aggravated [None]
  - Abdominal pain [None]
  - Drug ineffective [None]

NARRATIVE: CASE EVENT DATE: 20210401
